FAERS Safety Report 24837524 (Version 1)
Quarter: 2025Q1

REPORT INFORMATION
  Report Type: Spontaneous
  Country: US (occurrence: None)
  Receive Date: 20250112
  Receipt Date: 20250112
  Transmission Date: 20250409
  Serious: Yes (Hospitalization)
  Sender: FDA-CTU
  Company Number: None

PATIENT
  Age: 96 Year
  Sex: Female
  Weight: 69.75 kg

DRUGS (14)
  1. CYMBALTA [Suspect]
     Active Substance: DULOXETINE HYDROCHLORIDE
     Indication: Arthralgia
  2. METOPROLOL [Concomitant]
     Active Substance: METOPROLOL
  3. MINOXIDIL [Concomitant]
     Active Substance: MINOXIDIL
  4. ROSUVASTATIN [Concomitant]
     Active Substance: ROSUVASTATIN
  5. AMLODIPINE [Concomitant]
     Active Substance: AMLODIPINE BESYLATE
  6. SYNTHROID [Concomitant]
     Active Substance: LEVOTHYROXINE SODIUM
  7. TORSEMIDE [Concomitant]
     Active Substance: TORSEMIDE
  8. CALQUENCE [Concomitant]
     Active Substance: ACALABRUTINIB
  9. STOOL SOFTENER (DOCUSATE) [Concomitant]
     Active Substance: DOCUSATE
  10. TYLENOL [Concomitant]
     Active Substance: ACETAMINOPHEN
  11. Voltaire^s [Concomitant]
  12. Centrix multivitamin [Concomitant]
  13. VITAMIN D NOS [Concomitant]
     Active Substance: CHOLECALCIFEROL\ERGOCALCIFEROL
  14. low-dose asprin [Concomitant]

REACTIONS (4)
  - Abdominal pain [None]
  - Nausea [None]
  - Blood sodium decreased [None]
  - Gallbladder enlargement [None]

NARRATIVE: CASE EVENT DATE: 20241225
